FAERS Safety Report 8965143 (Version 2)
Quarter: 2013Q2

REPORT INFORMATION
  Report Type: Spontaneous
  Country: JP (occurrence: JP)
  Receive Date: 20121213
  Receipt Date: 20130404
  Transmission Date: 20140414
  Serious: Yes (Death, Other)
  Sender: FDA-Public Use
  Company Number: JP-ROCHE-1166867

PATIENT
  Age: 78 Year
  Sex: Female
  Weight: 51 kg

DRUGS (21)
  1. MIRCERA [Suspect]
     Indication: NEPHROGENIC ANAEMIA
     Route: 042
     Dates: start: 20110906, end: 20120604
  2. LIPLE [Concomitant]
     Route: 042
     Dates: end: 20120606
  3. EXACIN [Concomitant]
     Indication: ARTERIOVENOUS SHUNT OPERATION
     Route: 030
     Dates: start: 20120604, end: 20120605
  4. OXAROL [Concomitant]
     Indication: HYPERPARATHYROIDISM SECONDARY
     Route: 042
     Dates: start: 20120603, end: 20120604
  5. ALOSENN [Concomitant]
     Dosage: AFTER THE MEAL
     Route: 048
     Dates: end: 20120605
  6. NAUZELIN [Concomitant]
     Dosage: [NEMUMAE]
     Route: 048
     Dates: end: 20120605
  7. CINACALCET HYDROCHLORIDE [Concomitant]
     Route: 048
     Dates: end: 20120605
  8. REMITCH [Concomitant]
     Dosage: [NEMUMAE]
     Route: 048
     Dates: end: 20120605
  9. EVISTA [Concomitant]
     Dosage: MORNING
     Route: 048
     Dates: end: 20120606
  10. BAYASPIRIN [Concomitant]
     Dosage: MORNING
     Route: 048
     Dates: end: 20120606
  11. ALLEGRA [Concomitant]
     Dosage: MORNING AND EVENING
     Route: 048
     Dates: end: 20120606
  12. ISONITOLL [Concomitant]
     Dosage: MORNING AND EVENING
     Route: 048
     Dates: end: 20120606
  13. OXATOMIDE [Concomitant]
     Dosage: MORNING AND EVENING
     Route: 048
     Dates: end: 20120606
  14. SIGMART [Concomitant]
     Dosage: MORNING AND EVENING
     Route: 048
     Dates: end: 20120606
  15. PROTECADIN [Concomitant]
     Dosage: MORNING AND EVENING
     Route: 048
     Dates: end: 20120606
  16. EFFORTIL [Concomitant]
     Dosage: AFTER THE MEAL
     Route: 048
     Dates: end: 20120606
  17. SAWACHION [Concomitant]
     Dosage: AFTER THE MEAL
     Route: 048
     Dates: end: 20120606
  18. FOSRENOL [Concomitant]
     Dosage: AFTER THE MEAL
     Route: 048
     Dates: end: 20120606
  19. MERISLON [Concomitant]
     Dosage: AFTER THE MEAL
     Route: 048
     Dates: end: 20120606
  20. RENAGEL [Concomitant]
     Dosage: AFTER THE MEAL
     Route: 048
     Dates: end: 20120606
  21. SHAKUYAKU-KANZO-TO [Concomitant]
     Route: 048
     Dates: end: 20120606

REACTIONS (3)
  - Myocardial infarction [Fatal]
  - Extremity necrosis [Unknown]
  - Haemoglobin increased [Unknown]
